FAERS Safety Report 7550855-7 (Version None)
Quarter: 2011Q2

REPORT INFORMATION
  Report Type: 
  Country: None (occurrence: None)
  Receive Date: 20110616
  Receipt Date: 20110613
  Transmission Date: 20111010
  Serious: Yes (Other)
  Sender: FDA-Public Use
  Company Number: US-PFIZER INC-2010167039

PATIENT
  Sex: Male
  Weight: 143.78 kg

DRUGS (6)
  1. CHANTIX [Suspect]
     Dosage: 0.5 MG, 2X/DAY
     Route: 048
     Dates: start: 20100101, end: 20100101
  2. CHANTIX [Suspect]
     Indication: SMOKING CESSATION THERAPY
     Dosage: 0.5 MG, 1X/DAY
     Route: 048
     Dates: start: 20100222, end: 20100101
  3. ADDERALL 10 [Concomitant]
     Dosage: 10MG, DAILY
  4. CHANTIX [Suspect]
     Dosage: 1 MG, 2X/DAY
     Route: 048
     Dates: start: 20100101, end: 20100101
  5. CHANTIX [Suspect]
     Dosage: 1 MG, 1X/DAY
     Route: 048
     Dates: start: 20101115, end: 20101206
  6. NAPROXEN [Concomitant]
     Indication: BACK PAIN
     Dosage: 500 MG, AS NEEDED

REACTIONS (4)
  - ANXIETY [None]
  - INSOMNIA [None]
  - HALLUCINATION, AUDITORY [None]
  - NIGHTMARE [None]
